FAERS Safety Report 24440782 (Version 1)
Quarter: 2024Q4

REPORT INFORMATION
  Report Type: Spontaneous
  Country: CA (occurrence: CA)
  Receive Date: 20241016
  Receipt Date: 20241016
  Transmission Date: 20250115
  Serious: Yes (Other)
  Sender: CELLTRION
  Company Number: CA-CELLTRION INC.-2020CA028480

PATIENT

DRUGS (11)
  1. TRUXIMA [Suspect]
     Active Substance: RITUXIMAB-ABBS
     Indication: Rheumatoid arthritis
     Dosage: 1000 MG, Q2WEEKS
     Route: 042
     Dates: start: 20201001
  2. TRUXIMA [Suspect]
     Active Substance: RITUXIMAB-ABBS
     Dosage: 1000 MG INFUSION 3
     Route: 042
     Dates: start: 20201001
  3. TRUXIMA [Suspect]
     Active Substance: RITUXIMAB-ABBS
     Dosage: 1000 MG
     Route: 042
     Dates: start: 20201001
  4. TRUXIMA [Suspect]
     Active Substance: RITUXIMAB-ABBS
     Dosage: 1000 MG, INFUSION 4
     Route: 042
     Dates: start: 20201001
  5. TRUXIMA [Suspect]
     Active Substance: RITUXIMAB-ABBS
     Dosage: 1000 MG, INFUSION#5
     Route: 042
     Dates: start: 20201001
  6. TRUXIMA [Suspect]
     Active Substance: RITUXIMAB-ABBS
     Dosage: 1000 MG
     Route: 042
     Dates: start: 20201001
  7. TRUXIMA [Suspect]
     Active Substance: RITUXIMAB-ABBS
     Dosage: 1000 MG DAY 1 AND DAY 15
     Route: 042
     Dates: start: 20201001
  8. DIPHENHYDRAMINE [Concomitant]
     Active Substance: DIPHENHYDRAMINE
     Indication: Premedication
  9. METHYLPREDNISOLONE [Concomitant]
     Active Substance: METHYLPREDNISOLONE
     Indication: Premedication
  10. ACETAMINOPHEN [Concomitant]
     Active Substance: ACETAMINOPHEN
     Indication: Premedication
  11. UNSPECIFIED INGREDIENT [Concomitant]
     Active Substance: UNSPECIFIED INGREDIENT

REACTIONS (10)
  - Rheumatoid arthritis [Not Recovered/Not Resolved]
  - Pulse abnormal [Unknown]
  - Peripheral swelling [Unknown]
  - Pain in extremity [Unknown]
  - Poor venous access [Unknown]
  - Feeling abnormal [Unknown]
  - Nervousness [Unknown]
  - Blood pressure abnormal [Unknown]
  - Product dose omission issue [Unknown]
  - Off label use [Unknown]

NARRATIVE: CASE EVENT DATE: 20201001
